FAERS Safety Report 15262865 (Version 1)
Quarter: 2018Q3

REPORT INFORMATION
  Report Type: Report from Study
  Country: IT (occurrence: IT)
  Receive Date: 20180810
  Receipt Date: 20180810
  Transmission Date: 20181010
  Serious: Yes (Hospitalization)
  Sender: FDA-Public Use
  Company Number: IT-CONCORDIA PHARMACEUTICALS INC.-E2B_00015961

PATIENT
  Age: 84 Year
  Sex: Female

DRUGS (7)
  1. COUMADIN [Suspect]
     Active Substance: WARFARIN SODIUM
     Indication: THROMBOSIS PROPHYLAXIS
     Route: 048
     Dates: start: 20130101
  2. CARDICOR 1,25 MG COMPRESSE RIVESTITE CON FILM [Concomitant]
  3. AMIODARONE SANDOZ [Concomitant]
     Active Substance: AMIODARONE
  4. LASIX [Concomitant]
     Active Substance: FUROSEMIDE
  5. PANTORC 20 MG COMPRESSE GASTRORESISTENTI [Concomitant]
     Active Substance: PANTOPRAZOLE SODIUM
  6. LANOXIN [Suspect]
     Active Substance: DIGOXIN
     Indication: ATRIAL FIBRILLATION
     Route: 048
     Dates: start: 20130101, end: 20160202
  7. PROCAPTAN 5 MG COMPRESSE RIVESTITE CON FILM [Concomitant]

REACTIONS (4)
  - Dyspnoea [Recovering/Resolving]
  - Medication error [Recovering/Resolving]
  - Anaemia [Recovering/Resolving]
  - Hypertension [Recovering/Resolving]

NARRATIVE: CASE EVENT DATE: 20160202
